FAERS Safety Report 9228995 (Version 1)
Quarter: 2013Q2

REPORT INFORMATION
  Report Type: Spontaneous
  Country: FR (occurrence: FR)
  Receive Date: 20130412
  Receipt Date: 20130412
  Transmission Date: 20140414
  Serious: Yes (Hospitalization)
  Sender: FDA-Public Use
  Company Number: FR-VERTEX PHARMACEUTICALS INC.-000000000000000977

PATIENT
  Age: 56 Year
  Sex: Female

DRUGS (7)
  1. INCIVO [Suspect]
     Indication: HEPATITIS VIRAL
     Dosage: DOSAGE FORM: TABLET
     Route: 048
     Dates: start: 20120406, end: 20120509
  2. INCIVO [Suspect]
     Dosage: 750 MG, UNK
     Route: 048
     Dates: start: 20120921, end: 20121221
  3. PEGASYS [Suspect]
     Indication: HEPATITIS VIRAL
     Dosage: DOSAGE FORM: UNSPECIFIED
     Route: 058
     Dates: start: 20120921, end: 20121221
  4. PEGASYS [Suspect]
     Dosage: DOSAGE FORM: UNSPECIFIED
     Route: 058
     Dates: start: 20120406, end: 20120509
  5. COPEGUS [Suspect]
     Indication: HEPATITIS VIRAL
     Dosage: DOSAGE FORM: CAPSULES
     Route: 048
     Dates: start: 20120921, end: 20121221
  6. COPEGUS [Suspect]
     Dosage: DOSAGE FORM: CAPSULES
     Route: 048
     Dates: start: 20120406, end: 20120509
  7. FUROSEMIDE [Concomitant]
     Indication: PRODUCT USED FOR UNKNOWN INDICATION

REACTIONS (9)
  - Eosinophilia [None]
  - Lymphadenopathy [Unknown]
  - Asthenia [Unknown]
  - Rash maculo-papular [None]
  - Pruritus [Not Recovered/Not Resolved]
  - Thrombocytopenia [None]
  - Anaemia [None]
  - Renal failure [Unknown]
  - Diabetes mellitus inadequate control [Unknown]
